FAERS Safety Report 6780089-5 (Version None)
Quarter: 2010Q2

REPORT INFORMATION
  Report Type: 
  Country: None (occurrence: None)
  Receive Date: 20100618
  Receipt Date: 20100610
  Transmission Date: 20101027
  Serious: Yes (Other)
  Sender: FDA-Public Use
  Company Number: US-PFIZER INC-2010073820

PATIENT
  Sex: Male
  Weight: 86.2 kg

DRUGS (3)
  1. LIPITOR [Suspect]
     Indication: BLOOD CHOLESTEROL INCREASED
     Dosage: 5 MG, DAILY
     Route: 048
  2. FINASTERIDE [Concomitant]
     Indication: BENIGN PROSTATIC HYPERPLASIA
     Dosage: 5 MG, DAILY
  3. DIOVAN [Concomitant]
     Dosage: 160 MG, DAILY

REACTIONS (5)
  - BACK DISORDER [None]
  - BLOOD CALCIUM INCREASED [None]
  - GAIT DISTURBANCE [None]
  - MUSCLE DISORDER [None]
  - SPINAL MUSCULAR ATROPHY [None]
